FAERS Safety Report 12919488 (Version 1)
Quarter: 2016Q4

REPORT INFORMATION
  Report Type: Spontaneous
  Country: US (occurrence: US)
  Receive Date: 20161108
  Receipt Date: 20161108
  Transmission Date: 20170207
  Serious: No
  Sender: FDA-Public Use
  Company Number: US-BAYER-2016-210097

PATIENT
  Age: 74 Year
  Sex: Female
  Weight: 49.89 kg

DRUGS (1)
  1. MIRALAX [Suspect]
     Active Substance: POLYETHYLENE GLYCOL 3350
     Indication: CONSTIPATION PROPHYLAXIS
     Dosage: 1 DF, QD
     Route: 048
     Dates: start: 201610

REACTIONS (2)
  - Dry mouth [Unknown]
  - Product use issue [Unknown]

NARRATIVE: CASE EVENT DATE: 201610
